FAERS Safety Report 23486815 (Version 1)
Quarter: 2024Q1

REPORT INFORMATION
  Report Type: Spontaneous
  Country: CA (occurrence: CA)
  Receive Date: 20240206
  Receipt Date: 20240206
  Transmission Date: 20240409
  Serious: Yes (Other)
  Sender: FDA-Public Use
  Company Number: CA-PFIZER INC-202200498894

PATIENT
  Age: 71 Year
  Sex: Female

DRUGS (6)
  1. XELJANZ [Suspect]
     Active Substance: TOFACITINIB CITRATE
     Indication: Rheumatoid arthritis
     Dosage: 5 MG, 1X/DAY, HALF DOSE TAKEN THAN PRESCRIBED BID REGIMEN
     Route: 048
     Dates: start: 20020323
  2. XELJANZ [Suspect]
     Active Substance: TOFACITINIB CITRATE
     Dosage: 5 MG, DAILY (5MG TABLET PER DAY) HALF DOSE TAKEN THEN PRESCRIBED BID REGIMENSTATUS:
     Route: 048
     Dates: start: 20220323
  3. XELJANZ [Suspect]
     Active Substance: TOFACITINIB CITRATE
     Dosage: 5 MG, 2X/DAY (PRESCRIBED DOSE.STATUS: DISCONTINUED)
     Route: 048
  4. ARTHROTEC [Concomitant]
     Active Substance: DICLOFENAC SODIUM\MISOPROSTOL
     Dosage: 1 DF, DOSAGE INFORMATION NOT AVAILABLE
  5. FOLIC ACID [Concomitant]
     Active Substance: FOLIC ACID
     Dosage: 5 MG, 1X/DAY
     Route: 065
  6. HYDROXYCHLOROQUINE [Concomitant]
     Active Substance: HYDROXYCHLOROQUINE
     Dosage: 200 MG, 1X/DAY
     Route: 065

REACTIONS (9)
  - Retinal detachment [Unknown]
  - Off label use [Unknown]
  - Intentional dose omission [Unknown]
  - Stress urinary incontinence [Not Recovered/Not Resolved]
  - Urinary tract infection [Unknown]
  - Blister [Unknown]
  - Localised infection [Unknown]
  - Contusion [Unknown]
  - Cystitis [Unknown]

NARRATIVE: CASE EVENT DATE: 20220101
